FAERS Safety Report 15758001 (Version 42)
Quarter: 2023Q2

REPORT INFORMATION
  Report Type: Report from Study
  Country: GB (occurrence: GB)
  Receive Date: 20181225
  Receipt Date: 20230619
  Transmission Date: 20230722
  Serious: Yes (Hospitalization, Other)
  Sender: FDA-Public Use
  Company Number: None

PATIENT
  Age: 86 Year
  Sex: Female

DRUGS (74)
  1. ISOSORBIDE MONONITRATE [Suspect]
     Active Substance: ISOSORBIDE MONONITRATE
     Indication: Product used for unknown indication
     Dosage: MORNING, 50 MG, ONCE DAILY (QD)
     Route: 048
  2. APIXABAN [Suspect]
     Active Substance: APIXABAN
     Indication: Atrial fibrillation
     Dosage: 10 MG (1 DAY)
     Dates: start: 20180207, end: 20180207
  3. BISOPROLOL [Suspect]
     Active Substance: BISOPROLOL
     Indication: Cerebrovascular accident prophylaxis
     Dosage: 10 MG (1 DAY)
     Route: 048
     Dates: end: 20180207
  4. CANDESARTAN [Suspect]
     Active Substance: CANDESARTAN
     Indication: Cerebrovascular accident prophylaxis
     Dosage: 2 MILLIGRAM, QD
     Route: 048
  5. CETIRIZINE HYDROCHLORIDE [Suspect]
     Active Substance: CETIRIZINE HYDROCHLORIDE
     Indication: Product used for unknown indication
     Dosage: MORNING, 10 MG, ONCE DAILY (QD)
     Route: 048
  6. DIGOXIN [Suspect]
     Active Substance: DIGOXIN
     Indication: Cerebrovascular accident prophylaxis
     Dosage: MORNING, 62.5 UG, ONCE DAILY (QD)
  7. LANSOPRAZOLE [Suspect]
     Active Substance: LANSOPRAZOLE
     Indication: Atrial fibrillation
     Dosage: MORNING, 30 MG, ONCE DAILY (QD)
     Route: 048
  8. LEVOTHYROXINE [Suspect]
     Active Substance: LEVOTHYROXINE
     Indication: Product used for unknown indication
     Dosage: MORNING,125 UG,ONCE DAILY (QD), 50 MILLIGRAM, QD
     Route: 048
  9. SIMVASTATIN [Suspect]
     Active Substance: SIMVASTATIN
     Indication: Product used for unknown indication
     Dosage: NIGHT, 40 MG, ONCE DAILY (QD), ALSO FILM-COATED TABLET
     Route: 048
  10. APIXABAN [Suspect]
     Active Substance: APIXABAN
     Indication: Atrial fibrillation
     Dosage: 10 MG (1 DAY),OFF LABEL DOSING FREQUENCY, INTRAVENOUS (NOT OTHERWISE SPECIFIED)
     Route: 042
     Dates: start: 20180207, end: 20180207
  11. HYDROCHLOROTHIAZIDE [Suspect]
     Active Substance: HYDROCHLOROTHIAZIDE
     Indication: Cerebrovascular accident prophylaxis
     Dosage: 2 MG, QD MORNING
     Route: 048
  12. LINAGLIPTIN [Suspect]
     Active Substance: LINAGLIPTIN
     Indication: Product used for unknown indication
     Dosage: MORNING, 5 MG, ONCE DAILY (QD)
  13. CANDESARTAN [Suspect]
     Active Substance: CANDESARTAN
     Indication: Cerebrovascular accident prophylaxis
     Dosage: MORNING, 2 MG, ONCE DAILY (QD)
     Route: 048
  14. CANDESARTAN CILEXETIL AND HYDROCHLOROTHIAZIDE [Suspect]
     Active Substance: CANDESARTAN CILEXETIL\HYDROCHLOROTHIAZIDE
     Indication: Product used for unknown indication
     Dosage: 2 MG, QD (MORNING)
     Route: 048
  15. ISOSORBIDE MONONITRATE [Suspect]
     Active Substance: ISOSORBIDE MONONITRATE
     Indication: Product used for unknown indication
     Dosage: 50 MG, ONCE DAILY (QD) (MORNING),
     Route: 048
  16. ISOSORBIDE [Suspect]
     Active Substance: ISOSORBIDE
     Indication: Product used for unknown indication
     Dosage: 50 MILLIGRAM, QD,
     Route: 048
  17. IMDUR [Suspect]
     Active Substance: ISOSORBIDE MONONITRATE
     Indication: Product used for unknown indication
     Route: 048
  18. LINAGLIPTIN [Suspect]
     Active Substance: LINAGLIPTIN
     Indication: Product used for unknown indication
  19. SIMVASTATIN [Suspect]
     Active Substance: SIMVASTATIN
     Indication: Product used for unknown indication
     Dosage: 40 MG, ONCE DAILY (QD) (NIGHT))
  20. SIMVASTATIN [Suspect]
     Active Substance: SIMVASTATIN
     Indication: Product used for unknown indication
  21. ISOSORBIDE MONONITRATE [Suspect]
     Active Substance: ISOSORBIDE MONONITRATE
     Indication: Product used for unknown indication
  22. APIXABAN [Suspect]
     Active Substance: APIXABAN
     Indication: Product used for unknown indication
     Dosage: 5 MG, QD
     Route: 048
     Dates: start: 20180207
  23. ELIQUIS [Suspect]
     Active Substance: APIXABAN
     Indication: Product used for unknown indication
     Dosage: 5 MG, QD
     Route: 042
     Dates: start: 20180207, end: 20180207
  24. CETIRIZINE [Suspect]
     Active Substance: CETIRIZINE HYDROCHLORIDE
     Indication: Product used for unknown indication
     Dosage: 1 DOSAGE FORM, QD ,MORNING, INGREDIENT CETRIZINE 10
     Route: 048
  25. APIXABAN [Suspect]
     Active Substance: APIXABAN
     Indication: Atrial fibrillation
     Dosage: 5 MG, QD,  INTRAVENOUS (NOT OTHERWISE SPECIFIED)
     Route: 042
     Dates: start: 20180207, end: 20180207
  26. BISOPROLOL [Suspect]
     Active Substance: BISOPROLOL
     Indication: Cerebrovascular accident prophylaxis
     Dosage: 5 MG, QD
     Route: 048
     Dates: start: 20180207, end: 20180207
  27. LEVOTHYROXINE [Suspect]
     Active Substance: LEVOTHYROXINE
     Indication: Product used for unknown indication
     Dosage: MORNING,125 UG,ONCE DAILY (QD)
  28. LANSOPRAZOLE [Suspect]
     Active Substance: LANSOPRAZOLE
     Indication: Atrial fibrillation
     Dosage: 5 MG, QD
     Route: 048
     Dates: start: 20180207, end: 20180207
  29. LANSOPRAZOLE [Suspect]
     Active Substance: LANSOPRAZOLE
     Indication: Product used for unknown indication
     Dosage: 10 MG (1 DAY)
     Dates: end: 20180207
  30. CANDESARTAN [Suspect]
     Active Substance: CANDESARTAN
     Indication: Cerebrovascular accident prophylaxis
     Route: 048
  31. CANDESARTAN [Suspect]
     Active Substance: CANDESARTAN
     Indication: Cerebrovascular accident prophylaxis
     Dosage: 2 MG, QD MORNING
     Route: 048
  32. DIGOXIN [Suspect]
     Active Substance: DIGOXIN
     Indication: Cerebrovascular accident prophylaxis
     Dosage: 62.5 GRAM, QD
  33. LANSOPRAZOLE [Suspect]
     Active Substance: LANSOPRAZOLE
     Indication: Product used for unknown indication
     Dosage: 5 MILLIGRAM, QD
     Dates: start: 20180207, end: 20180207
  34. LEVOTHYROXINE [Suspect]
     Active Substance: LEVOTHYROXINE
     Indication: Product used for unknown indication
     Dosage: 12 MICROGRAM, QD
  35. LEVOTHYROXINE [Suspect]
     Active Substance: LEVOTHYROXINE
     Indication: Product used for unknown indication
     Dosage: 1 DF - 50G, ONCE DAILY (QD)
  36. LANSOPRAZOLE [Suspect]
     Active Substance: LANSOPRAZOLE
     Indication: Product used for unknown indication
     Dosage: 10 MG (1 DAY)
     Dates: start: 20180207
  37. HYDROCHLOROTHIAZIDE [Suspect]
     Active Substance: HYDROCHLOROTHIAZIDE
     Indication: Cerebrovascular accident prophylaxis
     Dosage: 1DOSAGE FORM, QD (MORNING)
     Route: 048
  38. LANSOPRAZOLE [Suspect]
     Active Substance: LANSOPRAZOLE
     Indication: Atrial fibrillation
     Dosage: 5 MILLIGRAM, QD
     Dates: end: 20180218
  39. LINAGLIPTIN [Suspect]
     Active Substance: LINAGLIPTIN
     Indication: Product used for unknown indication
     Dosage: 5 MG, ONCE DAILY (QD)
  40. LEVOTHYROXINE [Suspect]
     Active Substance: LEVOTHYROXINE
     Indication: Product used for unknown indication
     Dosage: 1 DOSAGE FORM 50G, ONCE DAILY (QD)
  41. LEVOTHYROXINE [Suspect]
     Active Substance: LEVOTHYROXINE
     Indication: Product used for unknown indication
     Dosage: 50 MILLIGRAM
  42. LEVOTHYROXINE [Suspect]
     Active Substance: LEVOTHYROXINE
     Indication: Product used for unknown indication
     Dosage: 10 MG, QD (10 MILLIGRAM
  43. IMDUR [Suspect]
     Active Substance: ISOSORBIDE MONONITRATE
     Indication: Product used for unknown indication
     Dosage: 50 MG, ONCE DAILY (QD) (MORNING), ORAL USE
  44. LANSOPRAZOLE [Suspect]
     Active Substance: LANSOPRAZOLE
     Indication: Product used for unknown indication
     Dosage: 5 MG, QD CAPSULE
     Dates: start: 20180207, end: 20180218
  45. LEVOTHYROXINE [Suspect]
     Active Substance: LEVOTHYROXINE
     Indication: Product used for unknown indication
     Dosage: 30 MG, ONCE DAILY MORNING, INTRAVENOUS (NOT OTHERWISE SPECIFIED)
  46. DIGOXIN [Suspect]
     Active Substance: DIGOXIN
     Indication: Product used for unknown indication
     Dosage: 62.5 MICROGRAM, OD (IN MORNING)
  47. LEVOTHYROXINE [Suspect]
     Active Substance: LEVOTHYROXINE
     Indication: Product used for unknown indication
     Dosage: 30 MG, ONCE DAILY MORNING
  48. CANDESARTAN [Suspect]
     Active Substance: CANDESARTAN
     Indication: Product used for unknown indication
     Dosage: 10 MILLIGRAM, QD
     Route: 048
  49. HYDROCHLOROTHIAZIDE [Suspect]
     Active Substance: HYDROCHLOROTHIAZIDE
     Indication: Product used for unknown indication
     Dosage: 10 MILLIGRAM, QD 10MG/ML
     Route: 048
  50. DIGOXIN [Suspect]
     Active Substance: DIGOXIN
     Indication: Cerebrovascular accident prophylaxis
  51. DIGOXIN [Suspect]
     Active Substance: DIGOXIN
     Indication: Product used for unknown indication
     Dosage: 63 MCG PER DAY
  52. LANSOPRAZOLE [Suspect]
     Active Substance: LANSOPRAZOLE
     Indication: Atrial fibrillation
     Dosage: 10 MG, QD(10 MILLIGRAM, QD, (10 MG (1 DAY))
     Dates: start: 20180207, end: 20180218
  53. LEVOTHYROXINE [Suspect]
     Active Substance: LEVOTHYROXINE
     Indication: Product used for unknown indication
     Dosage: 1 DF - 50G, ONCE DAILY
  54. CANDESARTAN [Suspect]
     Active Substance: CANDESARTAN
     Indication: Product used for unknown indication
     Dosage: 10 MILLIGRAM, QD
     Route: 048
  55. DIGOXIN [Suspect]
     Active Substance: DIGOXIN
     Indication: Product used for unknown indication
     Dosage: 4 MICROGRAM
  56. LINAGLIPTIN [Suspect]
     Active Substance: LINAGLIPTIN
     Indication: Product used for unknown indication
     Dosage: 40 MG, QD (NIGHT)
     Route: 048
  57. DIGOXIN [Suspect]
     Active Substance: DIGOXIN
     Indication: Product used for unknown indication
     Dosage: 62 MICROGRAM, QD
  58. DIGOXIN [Suspect]
     Active Substance: DIGOXIN
     Indication: Product used for unknown indication
     Dosage: 50 MG, QD (MORNING)
     Route: 048
  59. LANSOPRAZOLE [Suspect]
     Active Substance: LANSOPRAZOLE
     Indication: Atrial fibrillation
     Dosage: 5 MILLIGRAM, QD
     Dates: start: 20180218, end: 20180218
  60. CETIRIZINE [Suspect]
     Active Substance: CETIRIZINE HYDROCHLORIDE
     Indication: Product used for unknown indication
     Dosage: 62.5 UG, QD (MORNING)
  61. CETIRIZINE [Suspect]
     Active Substance: CETIRIZINE HYDROCHLORIDE
     Indication: Product used for unknown indication
     Dosage: 10 MILLIGRAM, QD (IN MORNING)
  62. APIXABAN [Suspect]
     Active Substance: APIXABAN
     Indication: Product used for unknown indication
     Dosage: 5 MG, QD
     Route: 048
     Dates: end: 20180207
  63. CANDESARTAN [Suspect]
     Active Substance: CANDESARTAN
     Indication: Cerebrovascular accident prophylaxis
     Dosage: 1 DOSAGE FORM, QD ,MORNING
     Route: 048
  64. ELIQUIS [Suspect]
     Active Substance: APIXABAN
     Indication: Product used for unknown indication
     Dosage: 5 MG, QD
     Dates: start: 20180207, end: 20180207
  65. ELIQUIS [Suspect]
     Active Substance: APIXABAN
     Indication: Product used for unknown indication
     Route: 042
     Dates: start: 20180207, end: 20180207
  66. LEVOTHYROXINE [Suspect]
     Active Substance: LEVOTHYROXINE
     Indication: Product used for unknown indication
     Dosage: 5 MG, QD (MORNING)
  67. CANDESARTAN CILEXETIL AND HYDROCHLOROTHIAZIDE [Suspect]
     Active Substance: CANDESARTAN CILEXETIL\HYDROCHLOROTHIAZIDE
     Indication: Product used for unknown indication
     Dosage: 10 MILLIGRAM/ML
     Route: 048
  68. CANDESARTAN CILEXETIL AND HYDROCHLOROTHIAZIDE [Suspect]
     Active Substance: CANDESARTAN CILEXETIL\HYDROCHLOROTHIAZIDE
     Indication: Product used for unknown indication
     Dosage: 10 MG, QD, 10MG/ML
  69. LEVOTHYROXINE [Suspect]
     Active Substance: LEVOTHYROXINE
     Indication: Product used for unknown indication
     Dosage: 30 MG/KG, QD, (MORNING) 30MG/ML
  70. ISOSORBIDE MONONITRATE [Suspect]
     Active Substance: ISOSORBIDE MONONITRATE
     Indication: Product used for unknown indication
     Dosage: 50 MILLIGRAM,QD (MORNING)
  71. LEVOTHYROXINE [Suspect]
     Active Substance: LEVOTHYROXINE
     Indication: Product used for unknown indication
     Dosage: 5 G, QD
  72. APIXABAN [Suspect]
     Active Substance: APIXABAN
     Indication: Atrial fibrillation
     Dosage: 5 MG, QD
     Dates: start: 20180207, end: 20180207
  73. LEVOTHYROXINE [Suspect]
     Active Substance: LEVOTHYROXINE
     Indication: Product used for unknown indication
     Dosage: 12 MICROGRAM, QD
     Route: 048
  74. BISOPROLOL [Suspect]
     Active Substance: BISOPROLOL
     Indication: Product used for unknown indication
     Dosage: 10 MG (1 DAY)10 MG, QD, OFF LABEL USE
     Route: 048
     Dates: start: 20180207, end: 20180207

REACTIONS (4)
  - Intentional product use issue [Unknown]
  - Intentional product misuse [Unknown]
  - Off label use [Unknown]
  - Subarachnoid haemorrhage [Recovered/Resolved with Sequelae]

NARRATIVE: CASE EVENT DATE: 20180207
